FAERS Safety Report 16430420 (Version 6)
Quarter: 2022Q1

REPORT INFORMATION
  Report Type: Spontaneous
  Country: PL (occurrence: PL)
  Receive Date: 20190614
  Receipt Date: 20220317
  Transmission Date: 20220424
  Serious: Yes (Hospitalization, Other)
  Sender: FDA-Public Use
  Company Number: PL-AUROBINDO-AUR-APL-2019-033208

PATIENT
  Age: 23 Year
  Sex: Female

DRUGS (9)
  1. ARIPIPRAZOLE [Suspect]
     Active Substance: ARIPIPRAZOLE
     Indication: Hepato-lenticular degeneration
     Dosage: 10 MILLIGRAM
     Route: 065
  2. ARIPIPRAZOLE [Suspect]
     Active Substance: ARIPIPRAZOLE
     Indication: Anxiety
     Dosage: 20 MILLIGRAM, ONCE A DAY
     Route: 065
  3. ARIPIPRAZOLE [Suspect]
     Active Substance: ARIPIPRAZOLE
     Indication: Depression
     Dosage: 10 MILLIGRAM, ONCE A DAY  (THE DOSE OF ARIPIPRAZOLE WAS DECREASED TO 10 MG AND)
     Route: 065
  4. OLANZAPINE [Suspect]
     Active Substance: OLANZAPINE
     Indication: Hepato-lenticular degeneration
     Dosage: 10 MILLIGRAM, ONCE A DAY
     Route: 065
  5. OLANZAPINE [Suspect]
     Active Substance: OLANZAPINE
     Indication: Anxiety
  6. OLANZAPINE [Suspect]
     Active Substance: OLANZAPINE
     Indication: Depression
  7. OLANZAPINE [Suspect]
     Active Substance: OLANZAPINE
     Indication: Psychiatric symptom
  8. PENICILLAMINE [Suspect]
     Active Substance: PENICILLAMINE
     Indication: Hepato-lenticular degeneration
     Dosage: UNKIN SLOWLY INCREASING DOSES
     Route: 065
  9. ZINC SULFATE [Concomitant]
     Active Substance: ZINC SULFATE
     Indication: Hepato-lenticular degeneration
     Dosage: 160 MILLIGRAM
     Route: 065

REACTIONS (9)
  - Neurological decompensation [Recovered/Resolved]
  - Dysphonia [Recovered/Resolved]
  - Tremor [Recovered/Resolved]
  - Slow speech [Recovered/Resolved]
  - Postural tremor [Recovered/Resolved]
  - Rash [Unknown]
  - Speech disorder [Recovered/Resolved]
  - Neurological symptom [Recovered/Resolved]
  - Product use in unapproved indication [Unknown]
